FAERS Safety Report 23386155 (Version 1)
Quarter: 2024Q1

REPORT INFORMATION
  Report Type: Spontaneous
  Country: CN (occurrence: CN)
  Receive Date: 20240110
  Receipt Date: 20240110
  Transmission Date: 20240409
  Serious: Yes (Other)
  Sender: FDA-Public Use
  Company Number: None

PATIENT
  Age: 71 Year
  Sex: Female
  Weight: 64.4 kg

DRUGS (3)
  1. CYCLOPHOSPHAMIDE [Suspect]
     Active Substance: CYCLOPHOSPHAMIDE
     Indication: Breast cancer female
     Dosage: 0.7 G, ONE TIME IN ONE DAY, COMBINED WITH EPIRUBICIN HYDROCHLORIDE (120 MG), DILUTED WITH 250 ML OF
     Route: 041
     Dates: start: 20231210, end: 20231210
  2. SODIUM CHLORIDE [Suspect]
     Active Substance: SODIUM CHLORIDE
     Indication: Medication dilution
     Dosage: 250 ML, ONE TIME IN ONE DAY, USED TO DILUTE CYCLOPHOSPHAMIDE (0.7 G) AND EPIRUBICIN HYDROCHLORIDE (1
     Route: 041
     Dates: start: 20231210, end: 20231210
  3. EPIRUBICIN HYDROCHLORIDE [Suspect]
     Active Substance: EPIRUBICIN HYDROCHLORIDE
     Indication: Breast cancer female
     Dosage: 120 MG, ONE TIME IN ONE DAY, COMBINED WITH CYCLOPHOSPHAMIDE (0.7 G), DILUTED WITH 250 ML OF 0.9% SOD
     Route: 041
     Dates: start: 20231210, end: 20231210

REACTIONS (1)
  - Myelosuppression [Recovering/Resolving]

NARRATIVE: CASE EVENT DATE: 20231213
